FAERS Safety Report 21768457 (Version 1)
Quarter: 2022Q4

REPORT INFORMATION
  Report Type: Spontaneous
  Country: US (occurrence: None)
  Receive Date: 20221221
  Receipt Date: 20221221
  Transmission Date: 20230113
  Serious: Yes (Hospitalization)
  Sender: FDA-Public Use
  Company Number: None

PATIENT
  Age: 60 Year
  Sex: Female

DRUGS (13)
  1. PREVYMIS [Suspect]
     Active Substance: LETERMOVIR
     Indication: Myeloproliferative neoplasm
     Route: 048
     Dates: start: 20221130
  2. ACYCLOVIR [Concomitant]
  3. CALCIUM [Concomitant]
     Active Substance: CALCIUM
  4. DEXAMETHASON TAB [Concomitant]
  5. GLUCOSAMINE TAB [Concomitant]
  6. JAKAFI [Concomitant]
  7. MAGNESIUM TAB [Concomitant]
  8. PROTONIX TAB [Concomitant]
  9. TUMERIC CAP [Concomitant]
  10. URSO 250 [Concomitant]
     Active Substance: URSODIOL
  11. VITAMIN B12 [Concomitant]
     Active Substance: CYANOCOBALAMIN
  12. VITAMIN C TAB [Concomitant]
  13. ZINC [Concomitant]
     Active Substance: ZINC

REACTIONS (1)
  - Hospitalisation [None]

NARRATIVE: CASE EVENT DATE: 20221221
